FAERS Safety Report 4913767-0 (Version None)
Quarter: 2006Q1

REPORT INFORMATION
  Report Type: 
  Country: None (occurrence: None)
  Receive Date: 20060216
  Receipt Date: 20060214
  Transmission Date: 20060701
  Serious: Yes (Hospitalization)
  Sender: FDA-Public Use
  Company Number: US-GLAXOSMITHKLINE-A0593719A

PATIENT
  Age: 65 Year
  Sex: Male
  Weight: 102 kg

DRUGS (3)
  1. MELPHALAN [Suspect]
     Indication: MULTIPLE MYELOMA
     Dosage: 400MG SINGLE DOSE
     Route: 042
     Dates: start: 20051113, end: 20051113
  2. DEXAMETHASONE [Suspect]
     Indication: MULTIPLE MYELOMA
     Dosage: 20MG SEE DOSAGE TEXT
     Route: 048
     Dates: start: 20051207, end: 20051210
  3. THALIDOMIDE [Suspect]
     Indication: MULTIPLE MYELOMA
     Route: 048
     Dates: start: 20051207

REACTIONS (6)
  - COUGH [None]
  - HEADACHE [None]
  - PNEUMONIA [None]
  - PYREXIA [None]
  - RHINORRHOEA [None]
  - SINUSITIS [None]
